FAERS Safety Report 4328345-4 (Version None)
Quarter: 2004Q1

REPORT INFORMATION
  Report Type: 
  Country: None (occurrence: None)
  Receive Date: 20040331
  Receipt Date: 20040324
  Transmission Date: 20041129
  Serious: Yes (Hospitalization)
  Sender: FDA-Public Use
  Company Number: PHBS2004HK04078

PATIENT
  Age: 50 Year
  Sex: Male

DRUGS (3)
  1. CYCLOSPORINE [Suspect]
     Indication: RENAL TRANSPLANT
     Route: 065
     Dates: start: 20020801
  2. MYCOPHENOLATE MOFETIL [Suspect]
     Indication: RENAL TRANSPLANT
     Route: 065
     Dates: start: 20020801
  3. STEROIDS NOS [Concomitant]
     Indication: RENAL TRANSPLANT
     Route: 065
     Dates: start: 20020801

REACTIONS (15)
  - ANAEMIA OF CHRONIC DISEASE [None]
  - BLOOD ALBUMIN DECREASED [None]
  - BLOOD CREATININE INCREASED [None]
  - BLOOD UREA INCREASED [None]
  - COMPLEMENT FACTOR C3 DECREASED [None]
  - DISEASE RECURRENCE [None]
  - GAMMOPATHY [None]
  - GENERALISED OEDEMA [None]
  - GLOBULINS DECREASED [None]
  - GLOMERULONEPHROPATHY [None]
  - HAEMATURIA [None]
  - HYPERTENSION [None]
  - PROTEINURIA [None]
  - RENAL IMPAIRMENT [None]
  - URINARY CASTS [None]
